FAERS Safety Report 19997926 (Version 1)
Quarter: 2021Q4

REPORT INFORMATION
  Report Type: Spontaneous
  Country: CN (occurrence: CN)
  Receive Date: 20211026
  Receipt Date: 20211026
  Transmission Date: 20220303
  Serious: Yes (Hospitalization)
  Sender: FDA-Public Use
  Company Number: CN-BOEHRINGERINGELHEIM-2021-BI-132876

PATIENT
  Age: 71 Year
  Sex: Female
  Weight: 50 kg

DRUGS (3)
  1. ALTEPLASE [Suspect]
     Active Substance: ALTEPLASE
     Indication: Thrombolysis
     Dosage: 30 MG + NORMAL SALINE(NS) 100 MG IVGTT
     Route: 042
     Dates: start: 20211005, end: 20211005
  2. ASPIRIN [Suspect]
     Active Substance: ASPIRIN
     Indication: Antiplatelet therapy
     Route: 048
     Dates: start: 20211006, end: 20211007
  3. CLOPIDOGREL BISULFATE [Suspect]
     Active Substance: CLOPIDOGREL BISULFATE
     Indication: Antiplatelet therapy
     Route: 048
     Dates: start: 20211006, end: 20211007

REACTIONS (2)
  - Haemoglobin decreased [Recovering/Resolving]
  - Gastrointestinal haemorrhage [Recovering/Resolving]

NARRATIVE: CASE EVENT DATE: 20211007
